APPROVED DRUG PRODUCT: SEVELAMER CARBONATE
Active Ingredient: SEVELAMER CARBONATE
Strength: 800MG
Dosage Form/Route: TABLET;ORAL
Application: A090975 | Product #001
Applicant: IMPAX LABORATORIES INC
Approved: Oct 23, 2017 | RLD: No | RS: No | Type: DISCN